FAERS Safety Report 13435901 (Version 1)
Quarter: 2017Q2

REPORT INFORMATION
  Report Type: Report from Study
  Country: US (occurrence: US)
  Receive Date: 20170413
  Receipt Date: 20170413
  Transmission Date: 20170830
  Serious: Yes (Other)
  Sender: FDA-Public Use
  Company Number: US-BAYER-2017-065218

PATIENT
  Age: 71 Year
  Sex: Female

DRUGS (1)
  1. NEXAVAR [Suspect]
     Active Substance: SORAFENIB
     Indication: PRODUCT USED FOR UNKNOWN INDICATION
     Dosage: 400 MG, BID
     Route: 048

REACTIONS (6)
  - Cerebrovascular accident [None]
  - Diarrhoea [None]
  - Neuralgia [None]
  - Pain in extremity [None]
  - Squamous cell carcinoma of skin [Not Recovered/Not Resolved]
  - Gait disturbance [None]

NARRATIVE: CASE EVENT DATE: 201701
